FAERS Safety Report 15005190 (Version 1)
Quarter: 2018Q2

REPORT INFORMATION
  Report Type: Spontaneous
  Country: IT (occurrence: IT)
  Receive Date: 20180613
  Receipt Date: 20180613
  Transmission Date: 20180711
  Serious: Yes (Hospitalization)
  Sender: FDA-Public Use
  Company Number: IT-CIPLA LTD.-2018IT18989

PATIENT

DRUGS (3)
  1. DEPAKIN [Suspect]
     Active Substance: VALPROATE SODIUM
     Indication: BIPOLAR DISORDER
     Dosage: 3.5 G, UNK
     Route: 048
     Dates: start: 20180315, end: 20180315
  2. HALCION [Suspect]
     Active Substance: TRIAZOLAM
     Indication: BIPOLAR DISORDER
     Dosage: 20 DF, UNK
     Route: 048
     Dates: start: 20180315, end: 20180315
  3. ESCITALOPRAM [Suspect]
     Active Substance: ESCITALOPRAM OXALATE
     Indication: BIPOLAR DISORDER
     Dosage: 200 MG, UNK
     Route: 048
     Dates: start: 20180315, end: 20180315

REACTIONS (3)
  - Bradyphrenia [Recovered/Resolved]
  - Intentional overdose [Recovered/Resolved]
  - Intentional self-injury [Recovered/Resolved]

NARRATIVE: CASE EVENT DATE: 20180315
